FAERS Safety Report 8180928-X (Version None)
Quarter: 2012Q1

REPORT INFORMATION
  Report Type: 
  Country: None (occurrence: None)
  Receive Date: 20120229
  Receipt Date: 20120220
  Transmission Date: 20120608
  Serious: Yes (Other)
  Sender: FDA-Public Use
  Company Number: 2011SP005597

PATIENT
  Age: 48 Year
  Sex: Male

DRUGS (3)
  1. REBETOL [Suspect]
     Indication: HEPATITIS C
     Dosage: PO
     Route: 048
     Dates: start: 20100813, end: 20101113
  2. VIRAFERONPEG [Suspect]
     Indication: HEPATITIS C
     Dosage: 120 MCG;QW;SC
     Route: 058
     Dates: start: 20100813, end: 20101113
  3. NEUPOGEN [Concomitant]

REACTIONS (6)
  - NODULE [None]
  - HILAR LYMPHADENOPATHY [None]
  - SARCOIDOSIS [None]
  - LUNG INFILTRATION [None]
  - SCROTAL DISORDER [None]
  - LEUKOPENIA [None]
